FAERS Safety Report 16721875 (Version 3)
Quarter: 2019Q3

REPORT INFORMATION
  Report Type: Report from Study
  Country: TW (occurrence: TW)
  Receive Date: 20190820
  Receipt Date: 20190916
  Transmission Date: 20191005
  Serious: Yes (Other)
  Sender: FDA-Public Use
  Company Number: PHHY2019TW193774

PATIENT
  Age: 67 Year
  Sex: Male

DRUGS (21)
  1. TASIGNA [Suspect]
     Active Substance: NILOTINIB
     Indication: CHRONIC MYELOID LEUKAEMIA
     Dosage: 600 OT, UNK
     Route: 048
     Dates: start: 20140910
  2. TAMSULOSIN [Concomitant]
     Active Substance: TAMSULOSIN
     Dosage: 0.4 MG, UNK
     Route: 048
     Dates: start: 20161012
  3. TRAMADOL. [Concomitant]
     Active Substance: TRAMADOL
     Indication: NEPHROLITHIASIS
     Dosage: 50 MG, UNK
     Route: 042
     Dates: start: 20160421, end: 20160421
  4. LANSOPRAZOLE. [Concomitant]
     Active Substance: LANSOPRAZOLE
     Dosage: 30 MG, UNK
     Route: 048
     Dates: start: 20150916, end: 20151223
  5. ULTRACET [Concomitant]
     Active Substance: ACETAMINOPHEN\TRAMADOL HYDROCHLORIDE
     Indication: CALCULUS URINARY
     Dosage: 1 DF, UNK
     Route: 048
     Dates: start: 20160421, end: 20160424
  6. ULTRACET [Concomitant]
     Active Substance: ACETAMINOPHEN\TRAMADOL HYDROCHLORIDE
     Indication: NEPHROLITHIASIS
  7. FLUCLORONIDE. [Concomitant]
     Active Substance: FLUCLORONIDE
     Indication: SEBORRHOEIC KERATOSIS
     Dosage: UNK
     Route: 061
     Dates: start: 20150708, end: 20150908
  8. SODIUM PHOSPHATE MONOBASIC [Concomitant]
     Active Substance: SODIUM PHOSPHATE, MONOBASIC
     Indication: PROPHYLAXIS
     Dosage: 118 ML, UNK
     Route: 054
     Dates: start: 20160427, end: 20160427
  9. TAMSULOSIN [Concomitant]
     Active Substance: TAMSULOSIN
     Indication: BENIGN PROSTATIC HYPERPLASIA
     Dosage: 0.4 MG, UNK
     Route: 048
     Dates: start: 20160421, end: 20160424
  10. CEFADROXIL. [Concomitant]
     Active Substance: CEFADROXIL
     Indication: INFECTION
     Dosage: 500 MG, UNK
     Route: 048
     Dates: start: 20160428, end: 20160505
  11. CELEBREX [Concomitant]
     Active Substance: CELECOXIB
     Indication: INFECTION
     Dosage: 1 DF, UNK
     Route: 048
     Dates: start: 20161030, end: 20161107
  12. FUROSEMIDE. [Concomitant]
     Active Substance: FUROSEMIDE
     Indication: OEDEMA
     Dosage: 20 MG, UNK
     Route: 048
     Dates: start: 20160603, end: 20160608
  13. TAMSULOSIN HYDROCHLORIDE. [Concomitant]
     Active Substance: TAMSULOSIN HYDROCHLORIDE
     Indication: BENIGN PROSTATIC HYPERPLASIA
     Dosage: 0.2 MG, UNK
     Route: 048
     Dates: end: 20161011
  14. TAMSULOSIN HYDROCHLORIDE. [Concomitant]
     Active Substance: TAMSULOSIN HYDROCHLORIDE
     Dosage: 0.2 MG, UNK
     Route: 048
  15. TRANEXAMIC ACID. [Concomitant]
     Active Substance: TRANEXAMIC ACID
     Indication: HAEMATURIA
     Dosage: 250 MG, UNK
     Route: 048
     Dates: start: 20160603, end: 20160608
  16. FAMOTIDINE. [Concomitant]
     Active Substance: FAMOTIDINE
     Indication: ABDOMINAL DISCOMFORT
     Dosage: 20 MG, UNK
     Route: 048
     Dates: start: 20161101, end: 20161104
  17. MOPRIDE [Concomitant]
     Indication: DUODENAL ULCER
     Dosage: 5 MG, UNK
     Route: 048
     Dates: end: 20141030
  18. FINASTERIDE. [Concomitant]
     Active Substance: FINASTERIDE
     Indication: BENIGN PROSTATIC HYPERPLASIA
     Dosage: 5 MG, UNK
     Route: 048
     Dates: end: 20141123
  19. LANSOPRAZOLE. [Concomitant]
     Active Substance: LANSOPRAZOLE
     Indication: SMALL INTESTINE CARCINOMA
     Dosage: 30 MG, UNK
     Route: 048
     Dates: end: 20141030
  20. MEBEVERINE [Concomitant]
     Active Substance: MEBEVERINE
     Indication: DUODENAL ULCER
     Dosage: 100 MG, UNK
     Route: 048
     Dates: start: 20150916, end: 20151223
  21. TRAMADOL. [Concomitant]
     Active Substance: TRAMADOL
     Indication: CALCULUS URINARY

REACTIONS (1)
  - Tooth abscess [Recovered/Resolved]

NARRATIVE: CASE EVENT DATE: 20170116
